FAERS Safety Report 6865326-0 (Version None)
Quarter: 2010Q3

REPORT INFORMATION
  Report Type: 
  Country: None (occurrence: None)
  Receive Date: 20100721
  Receipt Date: 20080416
  Transmission Date: 20110219
  Serious: No
  Sender: FDA-Public Use
  Company Number: US-PFIZER INC-2008035654

PATIENT
  Sex: Female
  Weight: 90.9 kg

DRUGS (7)
  1. CHANTIX [Suspect]
     Indication: SMOKING CESSATION THERAPY
     Dates: start: 20080331, end: 20080414
  2. LEVOTHYROXINE SODIUM [Concomitant]
  3. ZESTRIL [Concomitant]
  4. ZOCOR [Concomitant]
  5. ATENOLOL [Concomitant]
  6. PERPHENAZINE [Concomitant]
  7. PROZAC [Concomitant]

REACTIONS (1)
  - GASTROOESOPHAGEAL REFLUX DISEASE [None]
